FAERS Safety Report 6905218-1 (Version None)
Quarter: 2010Q3

REPORT INFORMATION
  Report Type: 
  Country: None (occurrence: None)
  Receive Date: 20100804
  Receipt Date: 20100729
  Transmission Date: 20110219
  Serious: Yes (Hospitalization)
  Sender: FDA-Public Use
  Company Number: US-TYCO HEALTHCARE/MALLINCKRODT-T201001718

PATIENT
  Sex: Female
  Weight: 83.9 kg

DRUGS (3)
  1. OPTIMARK [Suspect]
     Indication: ANGIOGRAM CEREBRAL
     Dosage: 15 ML, SINGLE
     Route: 042
     Dates: start: 20100701, end: 20100701
  2. OPTIMARK [Suspect]
     Indication: NUCLEAR MAGNETIC RESONANCE IMAGING BRAIN
  3. VANCOMYCIN [Concomitant]
     Dosage: UNK
     Dates: start: 20100701

REACTIONS (3)
  - LIP SWELLING [None]
  - OFF LABEL USE [None]
  - SWOLLEN TONGUE [None]
